FAERS Safety Report 9668853 (Version 2)
Quarter: 2013Q4

REPORT INFORMATION
  Report Type: Report from Study
  Country: CA (occurrence: CA)
  Receive Date: 20131105
  Receipt Date: 20131105
  Transmission Date: 20140711
  Serious: Yes (Hospitalization, Other)
  Sender: FDA-Public Use
  Company Number: PHHY2012CA070342

PATIENT
  Age: 82 Year
  Sex: Male
  Weight: 74.83 kg

DRUGS (2)
  1. SANDOSTATIN LAR [Suspect]
     Indication: CARCINOID TUMOUR
     Dosage: 20 MG, EVERY 4 WEEKS
     Route: 030
     Dates: start: 20120725
  2. SANDOSTATIN [Suspect]
     Indication: CARCINOID TUMOUR
     Dosage: 150 UG, TWICE A DAY FOR 14 DAYS
     Route: 058
     Dates: start: 20120811

REACTIONS (6)
  - Pneumonia [Unknown]
  - Gastrointestinal obstruction [Unknown]
  - Abdominal pain [Unknown]
  - Aphagia [Recovered/Resolved]
  - Weight decreased [Recovering/Resolving]
  - Pain [Unknown]
